FAERS Safety Report 17055833 (Version 1)
Quarter: 2019Q4

REPORT INFORMATION
  Report Type: Report from Study
  Country: AT (occurrence: AT)
  Receive Date: 20191120
  Receipt Date: 20191120
  Transmission Date: 20200122
  Serious: Yes (Other)
  Sender: FDA-Public Use
  Company Number: AT-BAXTER-2019BAX023659

PATIENT
  Sex: Female

DRUGS (5)
  1. DOXIL [Suspect]
     Active Substance: DOXORUBICIN HYDROCHLORIDE
     Indication: BREAST CANCER
     Dosage: 4 CYCLES.
     Route: 065
     Dates: start: 20160920
  2. RIBOCICLIB. [Suspect]
     Active Substance: RIBOCICLIB
     Indication: BREAST CANCER
     Dosage: TABLET.
     Route: 065
     Dates: start: 20180823
  3. RIBOCICLIB. [Suspect]
     Active Substance: RIBOCICLIB
     Dosage: TABLET.
     Route: 065
     Dates: start: 20180626
  4. MYOCET [Suspect]
     Active Substance: DOXORUBICIN
     Indication: BREAST CANCER
     Dosage: 2 CYCLES.
     Route: 065
     Dates: start: 20170224
  5. LETROZOLE. [Suspect]
     Active Substance: LETROZOLE
     Indication: BREAST CANCER
     Route: 065
     Dates: start: 20170324

REACTIONS (6)
  - Platelet count increased [Recovered/Resolved]
  - Neutropenia [Not Recovered/Not Resolved]
  - Haemoglobin decreased [Unknown]
  - Lymphocyte count decreased [Unknown]
  - White blood cell count decreased [Not Recovered/Not Resolved]
  - Neutrophil count decreased [Not Recovered/Not Resolved]

NARRATIVE: CASE EVENT DATE: 20170124
